FAERS Safety Report 5895480-9 (Version None)
Quarter: 2008Q3

REPORT INFORMATION
  Report Type: 
  Country: None (occurrence: None)
  Receive Date: 20080924
  Receipt Date: 20080918
  Transmission Date: 20090109
  Serious: Yes (Death, Hospitalization)
  Sender: FDA-Public Use
  Company Number: JP-AVENTIS-200812959JP

PATIENT
  Age: 52 Year
  Sex: Male

DRUGS (6)
  1. RILUTEK [Suspect]
     Indication: AMYOTROPHIC LATERAL SCLEROSIS
     Route: 048
     Dates: start: 20030214
  2. PROGRAF [Concomitant]
     Route: 048
  3. BREDININ [Concomitant]
     Route: 048
  4. MEDROL [Concomitant]
     Route: 048
  5. URINORM [Concomitant]
     Route: 048
  6. BUFFERIN [Concomitant]
     Route: 048

REACTIONS (2)
  - DEATH [None]
  - URINARY TRACT INFECTION [None]
